FAERS Safety Report 14221717 (Version 2)
Quarter: 2018Q1

REPORT INFORMATION
  Report Type: Spontaneous
  Country: FR (occurrence: FR)
  Receive Date: 20171123
  Receipt Date: 20180201
  Transmission Date: 20180508
  Serious: Yes (Other)
  Sender: FDA-Public Use
  Company Number: FR-MERCK KGAA-2034984

PATIENT
  Age: 75 Year
  Sex: Female

DRUGS (2)
  1. NOVOTHYROX [Suspect]
     Active Substance: LEVOTHYROXINE SODIUM
     Indication: PRODUCT USED FOR UNKNOWN INDICATION
     Dates: start: 20171012
  2. EUTHYROX 175 MCG [Suspect]
     Active Substance: LEVOTHYROXINE SODIUM

REACTIONS (11)
  - Agitation [None]
  - Eye irritation [None]
  - Nervousness [None]
  - Headache [Recovered/Resolved]
  - Sleep disorder [Not Recovered/Not Resolved]
  - Haemoptysis [None]
  - Incorrect dose administered [None]
  - Stress [None]
  - Nasal discomfort [None]
  - Heart rate abnormal [None]
  - Bronchitis [None]

NARRATIVE: CASE EVENT DATE: 2017
